FAERS Safety Report 10592386 (Version 1)
Quarter: 2014Q4

REPORT INFORMATION
  Report Type: Spontaneous
  Country: US (occurrence: None)
  Receive Date: 20141117
  Receipt Date: 20141117
  Transmission Date: 20150529
  Serious: Yes (Hospitalization, Other)
  Sender: FDA-Public Use
  Company Number: 2014-US-014665

PATIENT
  Sex: Female

DRUGS (2)
  1. XYREM [Suspect]
     Active Substance: SODIUM OXYBATE
     Indication: NARCOLEPSY
     Dosage: FIRST DOSE
     Route: 048
     Dates: start: 200906, end: 2009
  2. ROCEPHIN [Suspect]
     Active Substance: CEFTRIAXONE SODIUM
     Indication: PRODUCT USED FOR UNKNOWN INDICATION
     Route: 048

REACTIONS (8)
  - Spinal fusion surgery [None]
  - Anxiety [None]
  - Migraine [None]
  - Gastric ulcer [None]
  - Thrombosis [None]
  - Sepsis [None]
  - Anaphylactic reaction [None]
  - Factor VII deficiency [None]

NARRATIVE: CASE EVENT DATE: 2013
